FAERS Safety Report 24454246 (Version 2)
Quarter: 2024Q4

REPORT INFORMATION
  Report Type: Report from Study
  Country: US (occurrence: US)
  Receive Date: 20241017
  Receipt Date: 20241018
  Transmission Date: 20250115
  Serious: No
  Sender: ROCHE
  Company Number: US-ROCHE-3429661

PATIENT
  Age: 27 Year
  Sex: Female
  Weight: 96.62 kg

DRUGS (10)
  1. RITUXAN [Suspect]
     Active Substance: RITUXIMAB
     Indication: Systemic lupus erythematosus
     Route: 065
  2. RITUXAN [Suspect]
     Active Substance: RITUXIMAB
     Indication: Pericarditis
  3. RECLAST [Concomitant]
     Active Substance: ZOLEDRONIC ACID
  4. LISINOPRIL [Concomitant]
     Active Substance: LISINOPRIL
  5. BUMETANIDE [Concomitant]
     Active Substance: BUMETANIDE
  6. CARVEDILOL [Concomitant]
     Active Substance: CARVEDILOL
     Route: 048
  7. OMEPRAZOLE [Concomitant]
     Active Substance: OMEPRAZOLE
  8. BENLYSTA [Concomitant]
     Active Substance: BELIMUMAB
  9. SULFAMETHOXAZOLE [Concomitant]
     Active Substance: SULFAMETHOXAZOLE
  10. PFIZER-BIONTECH COVID-19 VACCINE [Concomitant]
     Active Substance: TOZINAMERAN

REACTIONS (5)
  - Off label use [Unknown]
  - Neoplasm [Unknown]
  - Oedema [Unknown]
  - Muscular weakness [Unknown]
  - Anaemia [Unknown]
